FAERS Safety Report 6951043-5 (Version None)
Quarter: 2010Q3

REPORT INFORMATION
  Report Type: 
  Country: None (occurrence: None)
  Receive Date: 20100828
  Receipt Date: 20100303
  Transmission Date: 20110219
  Serious: No
  Sender: FDA-Public Use
  Company Number: US-ABBOTT-10P-163-0631661-00

PATIENT
  Sex: Male
  Weight: 93.524 kg

DRUGS (2)
  1. NIASPAN [Suspect]
     Indication: BLOOD CHOLESTEROL INCREASED
     Dosage: 500MG X 2 TABLETS
     Dates: end: 20100212
  2. NIASPAN [Suspect]
     Dosage: 2 TABLETS

REACTIONS (4)
  - HYPERSENSITIVITY [None]
  - OEDEMA PERIPHERAL [None]
  - URTICARIA [None]
  - WEIGHT INCREASED [None]
